FAERS Safety Report 24204819 (Version 1)
Quarter: 2024Q3

REPORT INFORMATION
  Report Type: Spontaneous
  Country: US (occurrence: US)
  Receive Date: 20240813
  Receipt Date: 20240813
  Transmission Date: 20241017
  Serious: Yes (Hospitalization, Other)
  Sender: HIKMA
  Company Number: US-HIKMA PHARMACEUTICALS-US-H14001-24-07378

PATIENT
  Age: 76 Year
  Sex: Female
  Weight: 98.4 kg

DRUGS (13)
  1. CYCLOPHOSPHAMIDE [Suspect]
     Active Substance: CYCLOPHOSPHAMIDE
     Indication: B-cell type acute leukaemia
     Dosage: 150 MG/M2, SCHEDULE: EVERY 12 HRS X 6 DOSES, DAYS 1-3
     Route: 042
  2. CYTARABINE [Suspect]
     Active Substance: CYTARABINE
     Indication: B-cell type acute leukaemia
     Dosage: CYCLE 1-2: 100 MG, SCHEDULE: DAY 2, DAY 8
     Route: 037
  3. CYTARABINE [Suspect]
     Active Substance: CYTARABINE
     Dosage: CYCLE 2, 4: DOSE: 0.5 G/M2/DOSE, SCHEDULE: EVERY 12 HRS X 4 DOSES, DAYS 2, 3
     Route: 042
  4. DEXAMETHASONE [Suspect]
     Active Substance: DEXAMETHASONE
     Indication: B-cell type acute leukaemia
     Dosage: CYCLE 1, 3: 20 MG,SCHEDULE: DAYS 1-4, DAYS 11-14
     Route: 048
  5. DEXAMETHASONE [Suspect]
     Active Substance: DEXAMETHASONE
     Indication: B-cell type acute leukaemia
     Dosage: CYCLE 1, 3: 20 MG,SCHEDULE: DAYS 1-4, DAYS 11-14
     Route: 042
  6. INOTUZUMAB OZOGAMICIN [Suspect]
     Active Substance: INOTUZUMAB OZOGAMICIN
     Indication: B-cell type acute leukaemia
     Dosage: CYCLE 1: TOTAL 0.9 MG/M2 (0.6 MG/M2 D2, 0.3 MG/M2 D8)
     Route: 042
     Dates: start: 20230612
  7. INOTUZUMAB OZOGAMICIN [Suspect]
     Active Substance: INOTUZUMAB OZOGAMICIN
     Dosage: CYCLES 2, 3, 4: TOTAL 0.6 MG/M2 (0.3 MG/M2 D2, 0.3 MG/M2 D8
     Route: 042
  8. METHOTREXATE [Suspect]
     Active Substance: METHOTREXATE
     Dosage: CYCLE 2: 250 MG/M2, SCHEDULE: DAY 1
     Route: 042
  9. METHOTREXATE [Suspect]
     Active Substance: METHOTREXATE
     Indication: B-cell type acute leukaemia
     Dosage: CYCLE 1-2: 12 MG, SCHEDULE: DAY 2, DAY 8
     Route: 037
  10. METHYLPREDNISOLONE ACETATE [Suspect]
     Active Substance: METHYLPREDNISOLONE ACETATE
     Indication: B-cell type acute leukaemia
     Dosage: CYCLE 2, 4: 50 MG, SCHEDULE: EVERY 12 HRS X 6 DOSES, DAYS 1-3,
     Route: 042
  11. RITUXIMAB [Suspect]
     Active Substance: RITUXIMAB
     Indication: B-cell type acute leukaemia
     Dosage: CYCLE 1-4: 375 MG/M2, SCHEDULE: DAY 2, DAY 8
     Route: 042
  12. VINCRISTINE SULFATE [Suspect]
     Active Substance: VINCRISTINE SULFATE
     Indication: B-cell type acute leukaemia
     Dosage: CYCLE 1, 3: 2 MG, SCHEDULE: DAY 1, DAY 8
     Route: 042
  13. MESNA [Concomitant]
     Active Substance: MESNA
     Indication: B-cell type acute leukaemia
     Dosage: UNK
     Route: 065

REACTIONS (1)
  - Platelet count decreased [Recovered/Resolved]

NARRATIVE: CASE EVENT DATE: 20230719
